FAERS Safety Report 6064773-7 (Version None)
Quarter: 2009Q1

REPORT INFORMATION
  Report Type: 
  Country: None (occurrence: None)
  Receive Date: 20090204
  Receipt Date: 20081217
  Transmission Date: 20090719
  Serious: No
  Sender: FDA-Public Use
  Company Number: A0758135A

PATIENT
  Age: 35 Year
  Sex: Female
  Weight: 73.2 kg

DRUGS (1)
  1. ARIXTRA [Suspect]
     Indication: DEEP VEIN THROMBOSIS
     Dosage: 7.5MG FOUR TIMES PER DAY
     Route: 058
     Dates: start: 20081111

REACTIONS (3)
  - ACCIDENTAL OVERDOSE [None]
  - COAGULATION FACTOR DECREASED [None]
  - DRUG EXPOSURE DURING PREGNANCY [None]
